FAERS Safety Report 24647316 (Version 2)
Quarter: 2024Q4

REPORT INFORMATION
  Report Type: Spontaneous
  Country: JP (occurrence: JP)
  Receive Date: 20241121
  Receipt Date: 20241202
  Transmission Date: 20250115
  Serious: Yes (Death)
  Sender: ELI LILLY AND COMPANY
  Company Number: JP-ELI_LILLY_AND_COMPANY-JP202411012194

PATIENT
  Age: 85 Year
  Sex: Male

DRUGS (5)
  1. OMVOH [Suspect]
     Active Substance: MIRIKIZUMAB-MRKZ
     Indication: Colitis ulcerative
     Dosage: UNK
     Route: 041
     Dates: start: 20241023, end: 20241104
  2. ASENAPINE MALEATE [Concomitant]
     Active Substance: ASENAPINE MALEATE
     Route: 060
  3. MEROPENEM [Concomitant]
     Active Substance: MEROPENEM
  4. FAMOTIDINE [Concomitant]
     Active Substance: FAMOTIDINE
  5. PREDNISOLONE [Concomitant]
     Active Substance: PREDNISOLONE

REACTIONS (1)
  - Colitis ulcerative [Fatal]
